FAERS Safety Report 11037243 (Version 1)
Quarter: 2015Q2

REPORT INFORMATION
  Report Type: Spontaneous
  Country: US (occurrence: US)
  Receive Date: 20150416
  Receipt Date: 20150416
  Transmission Date: 20150821
  Serious: No
  Sender: FDA-Public Use
  Company Number: US-PFIZER INC-2015123999

PATIENT
  Age: 79 Year
  Sex: Male
  Weight: 96 kg

DRUGS (7)
  1. PROMETHAZINE [Concomitant]
     Active Substance: PROMETHAZINE\PROMETHAZINE HYDROCHLORIDE
     Indication: NAUSEA
     Dosage: UNK, AS NEEDED
     Route: 048
  2. ADVIL PM [Suspect]
     Active Substance: DIPHENHYDRAMINE CITRATE\IBUPROFEN
     Dosage: 1/2 TABLET OF IBUPROFEN 200MG, DIPHENHYDRAMINE 38MG AT BEDTIME
     Route: 048
     Dates: start: 20150329, end: 20150330
  3. ALEVE [Concomitant]
     Active Substance: NAPROXEN SODIUM
     Indication: ARTHRITIS
     Dosage: 220 MG, 2X/DAY
     Route: 048
  4. HYALURONATE SODIUM [Concomitant]
     Active Substance: HYALURONATE SODIUM
     Indication: ARTHRALGIA
     Dosage: AS SCHEDULED
     Dates: start: 20150326
  5. ADVIL PM [Suspect]
     Active Substance: DIPHENHYDRAMINE CITRATE\IBUPROFEN
     Indication: SLEEP DISORDER
     Dosage: 1 TABLET OF IBUPROFEN 200MG, DIPHENHYDRAMINE 38MG AT BEDTIME
     Route: 048
     Dates: start: 20150402
  6. LEVOTHYROXINE [Concomitant]
     Active Substance: LEVOTHYROXINE
     Indication: HYPOTHYROIDISM
     Dosage: 50 ?G, 1X/DAY
     Route: 048
  7. RAMIPRIL. [Concomitant]
     Active Substance: RAMIPRIL
     Indication: HYPERTENSION
     Dosage: 10 MG, 1X/DAY
     Route: 048

REACTIONS (4)
  - Vomiting [Unknown]
  - Balance disorder [Unknown]
  - Gait disturbance [Unknown]
  - Bradyphrenia [Unknown]
